FAERS Safety Report 13851467 (Version 2)
Quarter: 2018Q4

REPORT INFORMATION
  Report Type: Report from Study
  Country: GB (occurrence: GB)
  Receive Date: 20170810
  Receipt Date: 20181102
  Transmission Date: 20190204
  Serious: Yes (Hospitalization, Other)
  Sender: FDA-Public Use
  Company Number: GB-ALEXION PHARMACEUTICALS INC.-A201708403

PATIENT
  Age: 2 Year
  Sex: Male
  Weight: 14.6 kg

DRUGS (32)
  1. SEBELIPASE ALFA [Suspect]
     Active Substance: SEBELIPASE ALFA
     Indication: LYSOSOMAL ACID LIPASE DEFICIENCY
     Dosage: 1 MG/KG, QW
     Route: 042
     Dates: start: 20150513, end: 20150812
  2. PARACETAMOL [Concomitant]
     Active Substance: ACETAMINOPHEN
     Indication: COUGH
     Dosage: 120 MG, BID
     Route: 048
     Dates: start: 20170627, end: 20170627
  3. BECLOMETASONE [Concomitant]
     Active Substance: BECLOMETHASONE DIPROPIONATE
     Indication: PRODUCT USED FOR UNKNOWN INDICATION
     Dosage: 200 ?G, BID
     Route: 065
  4. PARACETAMOL [Concomitant]
     Active Substance: ACETAMINOPHEN
     Indication: GASTROENTERITIS VIRAL
     Dosage: 165 MG, Q6H
     Route: 048
     Dates: start: 20161221
  5. RANITIDINE. [Concomitant]
     Active Substance: RANITIDINE
     Indication: PREMEDICATION
  6. DOMPERIDONE [Concomitant]
     Active Substance: DOMPERIDONE
     Dosage: 3.6 MG, TID
     Route: 065
  7. AMLODIPINE [Concomitant]
     Active Substance: AMLODIPINE BESYLATE
     Indication: HYPERTENSION
     Dosage: 5 MG, QD
     Route: 048
     Dates: start: 20161116
  8. CO-AMOXICLAV                       /00756801/ [Concomitant]
     Active Substance: AMOXICILLIN\CLAVULANIC ACID
     Indication: INFECTION
     Dosage: 390 MG, UNK
     Route: 042
     Dates: start: 20170127
  9. SALBUTAMOL [Concomitant]
     Active Substance: ALBUTEROL
     Indication: PRODUCT USED FOR UNKNOWN INDICATION
     Dosage: 1-2 PUFFS, PRN
     Route: 065
  10. SYTRON [Concomitant]
     Indication: IRON DEFICIENCY
     Dosage: 2.5 ML, QD
     Route: 065
     Dates: start: 20160712
  11. RANITIDINE. [Concomitant]
     Active Substance: RANITIDINE
     Indication: VOMITING
     Dosage: 7.5 MG, TID
     Route: 048
     Dates: start: 20150527
  12. SODIUM BICARBONATE. [Concomitant]
     Active Substance: SODIUM BICARBONATE
     Dosage: 8 MMOL, IN THE MORNING
     Route: 065
  13. LOPERAMIDE [Concomitant]
     Active Substance: LOPERAMIDE
     Indication: PRODUCT USED FOR UNKNOWN INDICATION
     Dosage: 700 ?G, BID
     Route: 065
  14. HYDROCORTISONE. [Concomitant]
     Active Substance: HYDROCORTISONE
     Indication: PREMEDICATION
     Route: 065
  15. IBUPROFEN. [Concomitant]
     Active Substance: IBUPROFEN
     Indication: GASTROENTERITIS VIRAL
     Dosage: 60 MG, TID
     Route: 048
     Dates: start: 20161222
  16. TEICOPLANIN [Concomitant]
     Active Substance: TEICOPLANIN
     Indication: INFECTION
     Dosage: 70 MG, QD
     Route: 042
     Dates: start: 20170109
  17. TOCOPHERYL ACETATE [Concomitant]
     Active Substance: .ALPHA.-TOCOPHEROL ACETATE
     Indication: HYPOVITAMINOSIS
     Dosage: 200 MG, QD
     Route: 065
     Dates: start: 20161102
  18. SODIUM BICARBONATE. [Concomitant]
     Active Substance: SODIUM BICARBONATE
     Indication: GASTROENTERITIS VIRAL
     Dosage: 6 MBQ, QD
     Route: 048
     Dates: start: 20170107
  19. DOMPERIDONE [Concomitant]
     Active Substance: DOMPERIDONE
     Dosage: 2 MG, UNK
     Route: 065
     Dates: start: 20161221
  20. KETOVITE                           /00660901/ [Concomitant]
     Indication: HYPOVITAMINOSIS
     Dosage: 10 ML, QD
     Route: 065
     Dates: start: 20161102
  21. OMEPRAZOLE. [Concomitant]
     Active Substance: OMEPRAZOLE
     Indication: VOMITING
     Dosage: 10 MG, QD
     Route: 065
     Dates: start: 20161221
  22. DOMPERIDONE [Concomitant]
     Active Substance: DOMPERIDONE
     Indication: VOMITING
     Dosage: 2.5 MG, TID
     Route: 065
     Dates: start: 20160712
  23. VITAMIN E                          /00110501/ [Concomitant]
     Active Substance: TOCOPHEROL
     Indication: VITAMIN E DECREASED
     Dosage: 2 ML, QD
     Route: 048
     Dates: start: 20161221
  24. CHOLECALCIFEROL [Concomitant]
     Active Substance: CHOLECALCIFEROL
     Indication: VITAMIN E DECREASED
     Dosage: 2 ML, QD
     Route: 048
     Dates: start: 20161221
  25. SEBELIPASE ALFA [Suspect]
     Active Substance: SEBELIPASE ALFA
     Dosage: 3 MG/KG, QW
     Route: 042
     Dates: start: 20150819, end: 20160331
  26. SEBELIPASE ALFA [Suspect]
     Active Substance: SEBELIPASE ALFA
     Dosage: 5 MG/KG, QW
     Route: 042
     Dates: start: 20160407
  27. PARACETAMOL [Concomitant]
     Active Substance: ACETAMINOPHEN
     Indication: PREMEDICATION
     Dosage: 165 MG, QW
     Route: 042
     Dates: start: 20161227
  28. GAVISCON                           /00237601/ [Concomitant]
     Active Substance: ALUMINUM HYDROXIDE\MAGNESIUM CARBONATE
     Indication: VOMITING
     Dosage: 0.5 UNK, PRN
     Route: 048
     Dates: start: 20150507
  29. RITUXIMAB. [Concomitant]
     Active Substance: RITUXIMAB
     Indication: DRUG SPECIFIC ANTIBODY
     Dosage: 210 MG, QD
     Route: 042
     Dates: start: 20161227
  30. SODIUM CHLORIDE. [Concomitant]
     Active Substance: SODIUM CHLORIDE
     Indication: GASTROENTERITIS VIRAL
     Dosage: 2 MBQ, TID
     Route: 048
     Dates: start: 20170110
  31. CHLORPHENAMINE [Concomitant]
     Active Substance: CHLORPHENIRAMINE MALEATE
     Indication: PREMEDICATION
     Route: 065
  32. FLUCLOXACILLIN [Concomitant]
     Active Substance: FLUCLOXACILLIN
     Indication: SKIN INFECTION
     Dosage: 365 MG, QD
     Route: 042
     Dates: start: 20170711, end: 20170714

REACTIONS (2)
  - Vomiting [Recovered/Resolved]
  - Drug specific antibody present [Recovered/Resolved]

NARRATIVE: CASE EVENT DATE: 20170707
